FAERS Safety Report 6983599-0 (Version None)
Quarter: 2010Q3

REPORT INFORMATION
  Report Type: 
  Country: None (occurrence: None)
  Receive Date: 20100914
  Receipt Date: 20080926
  Transmission Date: 20110219
  Serious: No
  Sender: FDA-Public Use
  Company Number: US-WYE-H06169308

PATIENT
  Sex: Male
  Weight: 52.21 kg

DRUGS (1)
  1. ADVIL LIQUI-GELS [Suspect]
     Indication: INJURY
     Route: 048
     Dates: start: 20080924, end: 20080926

REACTIONS (1)
  - EYE SWELLING [None]
